FAERS Safety Report 5751410-1 (Version None)
Quarter: 2008Q2

REPORT INFORMATION
  Report Type: 
  Country: None (occurrence: None)
  Receive Date: 20080527
  Receipt Date: 20080507
  Transmission Date: 20081010
  Serious: Yes (Hospitalization, Other)
  Sender: FDA-Public Use
  Company Number: 2008AL004150

PATIENT
  Age: 62 Year
  Sex: Male

DRUGS (11)
  1. DIGOXIN [Suspect]
     Dosage: 0.25 MG, DAILY PO
     Route: 048
     Dates: start: 20010401
  2. GYLBURIDE [Concomitant]
  3. METFORMIN HCL [Concomitant]
  4. ASPIRIN [Concomitant]
  5. SIMVASTATIN [Concomitant]
  6. FUROSEMIDE [Concomitant]
  7. BENICAR [Concomitant]
  8. AMIODARONE HCL [Concomitant]
  9. LANTUS [Concomitant]
  10. HUMALOG [Concomitant]
  11. MIRAPEX [Concomitant]

REACTIONS (6)
  - CARDIAC PACEMAKER INSERTION [None]
  - DIZZINESS [None]
  - FLUID RETENTION [None]
  - HEADACHE [None]
  - HEART RATE DECREASED [None]
  - LETHARGY [None]
